FAERS Safety Report 11445569 (Version 1)
Quarter: 2015Q3

REPORT INFORMATION
  Report Type: Spontaneous
  Country: US (occurrence: US)
  Receive Date: 20150902
  Receipt Date: 20150902
  Transmission Date: 20151125
  Serious: No
  Sender: FDA-Public Use
  Company Number: US-G+W LABORATORIES-1041586

PATIENT
  Age: 66 Year
  Sex: Female
  Weight: 59.09 kg

DRUGS (1)
  1. CITALOPRAM HYDROBROMIDE. [Suspect]
     Active Substance: CITALOPRAM HYDROBROMIDE
     Indication: MAJOR DEPRESSION
     Route: 065

REACTIONS (6)
  - Vomiting [Unknown]
  - Insomnia [Unknown]
  - Burning sensation [Unknown]
  - Nausea [Unknown]
  - Weight decreased [Unknown]
  - Blood pressure increased [Unknown]
